FAERS Safety Report 25791815 (Version 1)
Quarter: 2025Q3

REPORT INFORMATION
  Report Type: Spontaneous
  Country: EU (occurrence: EU)
  Receive Date: 20250911
  Receipt Date: 20250911
  Transmission Date: 20251020
  Serious: Yes (Hospitalization, Other)
  Sender: CHEPLAPHARM
  Company Number: None

PATIENT
  Age: 65 Year
  Sex: Male
  Weight: 110 kg

DRUGS (18)
  1. OLANZAPINE [Interacting]
     Active Substance: OLANZAPINE
     Indication: Bipolar disorder
     Route: 048
  2. HYDROCHLOROTHIAZIDE\IRBESARTAN [Interacting]
     Active Substance: HYDROCHLOROTHIAZIDE\IRBESARTAN
     Indication: Hypertension
     Dosage: 300/25 MG X 1/DAY SINCE 24/04/25?REPORTED AS: 300/25 MG X 1/J DEPUIS 24/04/25 (1-0-0)
     Route: 048
     Dates: start: 20250424, end: 20250625
  3. BISOPROLOL [Interacting]
     Active Substance: BISOPROLOL
     Indication: Hypertension
     Dosage: 2.5 MG/DAY SINCE 01/10/24 (1-0-0)?REPORTED AS: 2.5 MG/J DEPUIS 01/10/24 (1-0-0)
     Route: 048
     Dates: start: 20241001
  4. CYAMEMAZINE [Interacting]
     Active Substance: CYAMEMAZINE
     Indication: Bipolar disorder
     Route: 048
  5. ACETAMINOPHEN\OPIUM [Interacting]
     Active Substance: ACETAMINOPHEN\OPIUM
     Indication: Pain
     Route: 048
     Dates: start: 20250616, end: 20250617
  6. ACETAMINOPHEN\OPIUM [Interacting]
     Active Substance: ACETAMINOPHEN\OPIUM
     Indication: Pain
     Route: 048
     Dates: start: 20250620, end: 20250623
  7. ROSUVASTATIN [Interacting]
     Active Substance: ROSUVASTATIN
     Dosage: 10 MG/DAY 0-0-1 (SINCE 01/10/2024). ROSUVASTATIN PAUSED (NOT TAKEN ON 24/06/25)?REPORTED AS: 10 ...
     Route: 048
     Dates: start: 20241001, end: 20250624
  8. VALPROATE SODIUM [Interacting]
     Active Substance: VALPROATE SODIUM
     Indication: Bipolar disorder
     Dosage: 500 MG 1 TABLET IN THE EVENING AT 6 P.M?REPORTED AS: 500 MG 1 COMPRIM? SOIR 18H
     Route: 048
  9. TRAMADOL HYDROCHLORIDE [Concomitant]
     Active Substance: TRAMADOL HYDROCHLORIDE
  10. TRAMADOL [Concomitant]
     Active Substance: TRAMADOL
  11. TAMSULOSIN [Concomitant]
     Active Substance: TAMSULOSIN
  12. TERIPARATIDE [Concomitant]
     Active Substance: TERIPARATIDE
     Indication: Osteoporosis
  13. ACETAMINOPHEN [Concomitant]
     Active Substance: ACETAMINOPHEN
  14. ASPIRIN [Concomitant]
     Active Substance: ASPIRIN
     Dosage: 100 MG GASTRO-RESISTANT TABLETS, 1 TABLET IN THE MORNING AT 8 A.M?REPORTED AS: 100 MG CP GASTROR...
  15. Akineton retard cpr [Concomitant]
     Dosage: 4 MG, 1 TABLET IN THE MORNING AT 8AM?REPORTED AS: 4 MG 1 COMPRIM? MATIN 8H
  16. EZETIMIBE [Concomitant]
     Active Substance: EZETIMIBE
     Dosage: 0-0-1?DAILY DOSE: 10 MILLIGRAM
  17. ESIDREX [Concomitant]
     Active Substance: HYDROCHLOROTHIAZIDE
     Dates: start: 20250703, end: 20250707
  18. CEFTRIAXONE [Concomitant]
     Active Substance: CEFTRIAXONE
     Dates: start: 20250623, end: 20250624

REACTIONS (22)
  - Orthostatic hypotension [Recovered/Resolved with Sequelae]
  - Fall [Recovered/Resolved with Sequelae]
  - Malaise [Recovered/Resolved with Sequelae]
  - Urinary retention [Recovered/Resolved]
  - Drug interaction [Not Recovered/Not Resolved]
  - Drug interaction [Recovered/Resolved]
  - Acute kidney injury [Recovering/Resolving]
  - Urinary retention [Recovered/Resolved]
  - Cholestasis [Recovered/Resolved]
  - Hepatic cytolysis [Recovered/Resolved]
  - Spinal fracture [Unknown]
  - Back pain [Unknown]
  - Osteonecrosis [Unknown]
  - Fall [Unknown]
  - Dyspnoea exertional [Unknown]
  - Malaise [Unknown]
  - Malaise [Unknown]
  - Loss of consciousness [Unknown]
  - Arthropathy [Unknown]
  - Gait disturbance [Unknown]
  - Pain [Unknown]
  - Benign prostatic hyperplasia [Unknown]

NARRATIVE: CASE EVENT DATE: 20250424
